FAERS Safety Report 9225274 (Version 3)
Quarter: 2013Q2

REPORT INFORMATION
  Report Type: Spontaneous
  Country: US (occurrence: US)
  Receive Date: 20130411
  Receipt Date: 20130612
  Transmission Date: 20140414
  Serious: Yes (Death, Hospitalization, Disabling, Other)
  Sender: FDA-Public Use
  Company Number: US-009507513-1205USA00048

PATIENT
  Sex: Female

DRUGS (3)
  1. FOSAMAX [Suspect]
     Indication: OSTEOPOROSIS
     Dosage: 70 MG, UNK
     Route: 048
     Dates: start: 2000, end: 2012
  2. FOSAMAX [Suspect]
     Indication: OSTEOPOROSIS
     Route: 048
  3. ALENDRONATE SODIUM [Suspect]
     Dosage: 70 MG, UNK

REACTIONS (44)
  - Femur fracture [Unknown]
  - Hip arthroplasty [Unknown]
  - Low turnover osteopathy [Unknown]
  - Stress fracture [Unknown]
  - Death [Fatal]
  - Medical device removal [Unknown]
  - Coagulopathy [Unknown]
  - Hip arthroplasty [Unknown]
  - Hip arthroplasty [Unknown]
  - Acute myocardial infarction [Unknown]
  - Hyperglycaemia [Unknown]
  - Upper gastrointestinal haemorrhage [Unknown]
  - Haemorrhagic anaemia [Unknown]
  - Shock haemorrhagic [Unknown]
  - Gastroduodenal ulcer [Unknown]
  - Gastroduodenal haemorrhage [Unknown]
  - Thrombocytosis [Unknown]
  - Hypovolaemic shock [Unknown]
  - Hypokalaemia [Unknown]
  - Transaminases increased [Unknown]
  - Sepsis syndrome [Unknown]
  - Colitis [Unknown]
  - Duodenal ulcer repair [Unknown]
  - Lactic acidosis [Unknown]
  - Leukocytosis [Unknown]
  - Cholecystectomy [Unknown]
  - Anaemia [Unknown]
  - Urinary tract infection [Unknown]
  - Melaena [Unknown]
  - Fall [Unknown]
  - Iron deficiency [Unknown]
  - Pancreatic cyst [Unknown]
  - Hypertension [Unknown]
  - Haemorrhoidal haemorrhage [Unknown]
  - Haemorrhoids [Unknown]
  - Biopsy breast [Unknown]
  - Glaucoma [Unknown]
  - Ankle operation [Unknown]
  - Shoulder operation [Unknown]
  - Hysterectomy [Unknown]
  - Eye operation [Unknown]
  - Osteoarthritis [Unknown]
  - Hypercholesterolaemia [Unknown]
  - Constipation [Not Recovered/Not Resolved]
